FAERS Safety Report 11785066 (Version 1)
Quarter: 2015Q4

REPORT INFORMATION
  Report Type: Spontaneous
  Country: IT (occurrence: IT)
  Receive Date: 20151130
  Receipt Date: 20151130
  Transmission Date: 20160305
  Serious: Yes (Other)
  Sender: FDA-Public Use
  Company Number: IT-TAKEDA-2015MPI007978

PATIENT

DRUGS (7)
  1. CYCLOPHOSPHAMIDE. [Concomitant]
     Active Substance: CYCLOPHOSPHAMIDE
     Indication: AMYLOIDOSIS
     Dosage: 300 MG/M2, UNK
     Route: 042
     Dates: start: 20150619, end: 20150710
  2. VELCADE [Suspect]
     Active Substance: BORTEZOMIB
     Dosage: 1.3 MG/M2, UNK
     Route: 058
     Dates: start: 20150827, end: 20150911
  3. VELCADE [Suspect]
     Active Substance: BORTEZOMIB
     Dosage: 0.7 MG/M2, UNK
     Route: 058
     Dates: start: 20150626
  4. VELCADE [Suspect]
     Active Substance: BORTEZOMIB
     Dosage: 1 MG/M2, UNK
     Route: 058
     Dates: start: 20150723, end: 20150813
  5. SOLDESAM [Concomitant]
     Active Substance: DEXAMETHASONE
     Indication: AMYLOIDOSIS
     Route: 048
     Dates: start: 20150619, end: 20150711
  6. VELCADE [Suspect]
     Active Substance: BORTEZOMIB
     Indication: AMYLOIDOSIS
     Dosage: 0.7 MG/M2, UNK
     Route: 058
     Dates: start: 20150514, end: 20150604
  7. VELCADE [Suspect]
     Active Substance: BORTEZOMIB
     Dosage: 1 MG/M2, UNK
     Route: 058
     Dates: start: 20150619, end: 20150619

REACTIONS (3)
  - Product use issue [Unknown]
  - Off label use [Unknown]
  - Neurotoxicity [Recovered/Resolved]

NARRATIVE: CASE EVENT DATE: 20150620
